FAERS Safety Report 9412268 (Version 1)
Quarter: 2013Q3

REPORT INFORMATION
  Report Type: Spontaneous
  Country: US (occurrence: US)
  Receive Date: 20130722
  Receipt Date: 20130722
  Transmission Date: 20140515
  Serious: No
  Sender: FDA-Public Use
  Company Number: US-UPSHER-SMITH LABORATORIES, INC.-13002390

PATIENT
  Age: 50 Year
  Sex: Female

DRUGS (3)
  1. DIVIGEL [Suspect]
     Indication: HOT FLUSH
     Dosage: 0.25 MG, QD
     Route: 061
     Dates: start: 201305, end: 201306
  2. ADVIL                              /00109201/ [Concomitant]
     Indication: HEADACHE
     Dosage: UNK
  3. PEPCID                             /00706001/ [Concomitant]
     Indication: DYSPEPSIA
     Dosage: UNK

REACTIONS (3)
  - Hot flush [Recovered/Resolved]
  - Irritability [Recovered/Resolved]
  - Drug dispensing error [Recovered/Resolved]
